FAERS Safety Report 6447260-3 (Version None)
Quarter: 2009Q4

REPORT INFORMATION
  Report Type: 
  Country: None (occurrence: None)
  Receive Date: 20091119
  Receipt Date: 20091119
  Transmission Date: 20100525
  Serious: Yes (Other)
  Sender: FDA-Public Use
  Company Number: US-PFIZER INC-2009256922

PATIENT
  Age: 65 Year
  Sex: Female
  Weight: 108.84 kg

DRUGS (6)
  1. LYRICA [Suspect]
     Indication: NEUROPATHY PERIPHERAL
     Dates: start: 20090601, end: 20090816
  2. LYRICA [Suspect]
     Indication: PARAESTHESIA
  3. ADVIL [Concomitant]
     Dosage: UNK
  4. THYROID TAB [Concomitant]
     Dosage: UNK
  5. TOPIRAMATE [Concomitant]
     Dosage: 100 MG, UNK
  6. VENLAFAXINE [Concomitant]
     Dosage: 75 MG, 1X/DAY

REACTIONS (9)
  - CONTUSION [None]
  - DRY MOUTH [None]
  - DYSGEUSIA [None]
  - GINGIVAL OPERATION [None]
  - MYALGIA [None]
  - NAUSEA [None]
  - PYREXIA [None]
  - TOOTHACHE [None]
  - VISION BLURRED [None]
